FAERS Safety Report 17483438 (Version 1)
Quarter: 2020Q1

REPORT INFORMATION
  Report Type: Spontaneous
  Country: US (occurrence: US)
  Receive Date: 20200218
  Receipt Date: 20200218
  Transmission Date: 20200409
  Serious: Yes (Hospitalization)
  Sender: FDA-Public Use
  Company Number: None

PATIENT
  Age: 63 Year
  Sex: Male
  Weight: 62 kg

DRUGS (1)
  1. VORICONAZOLE (VORICONAZOLE 200MG TAB) [Suspect]
     Active Substance: VORICONAZOLE
     Indication: BRONCHOPULMONARY ASPERGILLOSIS
     Dates: start: 20191226, end: 20200124

REACTIONS (4)
  - Rash [None]
  - Pruritus [None]
  - Photosensitivity reaction [None]
  - Stevens-Johnson syndrome [None]

NARRATIVE: CASE EVENT DATE: 20200112
